FAERS Safety Report 4736680-0 (Version None)
Quarter: 2005Q3

REPORT INFORMATION
  Report Type: 
  Country: None (occurrence: None)
  Receive Date: 20050804
  Receipt Date: 20050727
  Transmission Date: 20060218
  Serious: Yes (Hospitalization, Other)
  Sender: FDA-Public Use
  Company Number: 163-20785-05050269

PATIENT
  Age: 14 Year
  Sex: Female

DRUGS (13)
  1. THALOMID [Suspect]
     Indication: ANGIOSARCOMA
  2. CELEXA [Concomitant]
  3. CELEBREX (CELECOXIB B) [Concomitant]
  4. DOMPERIDONE (DOMPERIDONE) [Concomitant]
  5. PREVACID [Concomitant]
  6. KEPPRA [Concomitant]
  7. ATIVAN [Concomitant]
  8. ZOFRAN [Concomitant]
  9. COLACE (DOCUSATE SODIUM) [Concomitant]
  10. VITAMIN E [Concomitant]
  11. FOLIC ACID [Concomitant]
  12. FENTANYL CITRATE [Concomitant]
  13. MORPHINE [Concomitant]

REACTIONS (4)
  - ELECTROLYTE IMBALANCE [None]
  - METABOLIC DISORDER [None]
  - PROCEDURAL COMPLICATION [None]
  - VENTRICULAR TACHYCARDIA [None]
